FAERS Safety Report 5199144-9 (Version None)
Quarter: 2006Q4

REPORT INFORMATION
  Report Type: 
  Country: None (occurrence: None)
  Receive Date: 20060919
  Receipt Date: 20060221
  Transmission Date: 20070319
  Serious: Yes (Other)
  Sender: FDA-Public Use
  Company Number: HQWYE027727FEB06

PATIENT
  Age: 46 Year
  Sex: Female
  Weight: 72.64 kg

DRUGS (1)
  1. ADVIL [Suspect]
     Indication: DYSMENORRHOEA
     Dosage: 2 CAPSULES EVERY 4 HOURS (DID NOT EXCEED 6 CAPSULES IN A 24 HOUR PERIOD), ORAL
     Route: 048
     Dates: start: 20060216, end: 20060220

REACTIONS (3)
  - CONDITION AGGRAVATED [None]
  - DRUG EFFECT DECREASED [None]
  - DYSMENORRHOEA [None]
